FAERS Safety Report 5571397-4 (Version None)
Quarter: 2007Q4

REPORT INFORMATION
  Report Type: 
  Country: None (occurrence: None)
  Receive Date: 20071221
  Receipt Date: 20071005
  Transmission Date: 20080405
  Serious: Yes (Other)
  Sender: FDA-Public Use
  Company Number: A0686358A

PATIENT
  Age: 45 Year
  Sex: Female

DRUGS (13)
  1. FLONASE [Suspect]
     Dosage: 2SPR PER DAY
     Route: 045
     Dates: start: 20050901, end: 20070923
  2. ZYRTEC [Concomitant]
  3. SYNTHROID [Concomitant]
  4. OMEPRAZOLE [Concomitant]
  5. ATENOLOL [Concomitant]
  6. AMITRIPTLINE HCL [Concomitant]
  7. KLONOPIN [Concomitant]
  8. GABAPENTIN [Concomitant]
  9. PROVIGIL [Concomitant]
  10. VIVELLE [Concomitant]
  11. UNSPECIFIED MEDICATION [Concomitant]
  12. IMITREX [Concomitant]
  13. ROZEREM [Concomitant]

REACTIONS (1)
  - CATARACT SUBCAPSULAR [None]
